FAERS Safety Report 5444909-9 (Version None)
Quarter: 2007Q3

REPORT INFORMATION
  Report Type: 
  Country: None (occurrence: None)
  Receive Date: 20070906
  Receipt Date: 20070829
  Transmission Date: 20080115
  Serious: Yes (Other)
  Sender: FDA-Public Use
  Company Number: A0678936A

PATIENT
  Sex: Female

DRUGS (1)
  1. ADVAIR DISKUS 100/50 [Suspect]
     Indication: DRUG USE FOR UNKNOWN INDICATION
     Route: 055
     Dates: end: 20070820

REACTIONS (6)
  - ANGER [None]
  - APHONIA [None]
  - CHOKING [None]
  - DIZZINESS [None]
  - DYSPHONIA [None]
  - MALAISE [None]
